FAERS Safety Report 12310740 (Version 7)
Quarter: 2019Q1

REPORT INFORMATION
  Report Type: Spontaneous
  Country: US (occurrence: US)
  Receive Date: 20160427
  Receipt Date: 20190117
  Transmission Date: 20190417
  Serious: Yes (Hospitalization, Other)
  Sender: FDA-Public Use
  Company Number: US-ELI_LILLY_AND_COMPANY-US201604001268

PATIENT
  Age: 65 Year
  Sex: Female
  Weight: 115 kg

DRUGS (29)
  1. HUMULIN N [Suspect]
     Active Substance: INSULIN HUMAN
     Dosage: UNK UNK, UNKNOWN
     Route: 065
     Dates: start: 20171204
  2. HUMULIN N [Suspect]
     Active Substance: INSULIN HUMAN
     Dosage: 76 U, EACH MORNING
     Route: 058
  3. HUMULIN N [Suspect]
     Active Substance: INSULIN HUMAN
     Dosage: 60 U, DAILY BEFORE BED
     Route: 058
  4. HUMULIN N [Suspect]
     Active Substance: INSULIN HUMAN
     Dosage: 84 U, EACH MORNING
     Route: 058
  5. HUMULIN N [Suspect]
     Active Substance: INSULIN HUMAN
     Dosage: 60 U, DAILY BEFORE BED
     Route: 058
  6. HUMULIN R U-500 [Suspect]
     Active Substance: INSULIN HUMAN
     Dosage: 95 U, AT SUPPER TIME
     Route: 065
     Dates: start: 201605
  7. HUMULIN N [Suspect]
     Active Substance: INSULIN HUMAN
     Dosage: UNK UNK, UNKNOWN
     Route: 065
     Dates: start: 20160829
  8. HUMULIN N [Suspect]
     Active Substance: INSULIN HUMAN
     Dosage: 80 U, EACH MORNING
     Route: 058
  9. HUMULIN R [Suspect]
     Active Substance: INSULIN HUMAN
     Indication: INSULIN RESISTANCE
     Dosage: 20 U, EACH EVENING
     Route: 065
     Dates: start: 1996, end: 201605
  10. HUMULIN R U-500 [Suspect]
     Active Substance: INSULIN HUMAN
     Indication: TYPE 2 DIABETES MELLITUS
     Dosage: 145 U, EACH MORNING
     Route: 065
     Dates: start: 201605
  11. HUMULIN R U-500 [Suspect]
     Active Substance: INSULIN HUMAN
     Dosage: 135 U, EACH MORNING
     Route: 065
  12. HUMULIN N [Suspect]
     Active Substance: INSULIN HUMAN
     Dosage: 25 U, EACH EVENING
     Route: 058
  13. HUMULIN N [Suspect]
     Active Substance: INSULIN HUMAN
     Dosage: 25 U, DAILY BEFORE LUNCH
     Route: 058
  14. HUMULIN R U-500 [Suspect]
     Active Substance: INSULIN HUMAN
     Dosage: 18 U, DAILY
     Route: 058
  15. HUMULIN N [Suspect]
     Active Substance: INSULIN HUMAN
     Dosage: 38 U, BEFORE BED
     Route: 058
     Dates: start: 201605, end: 20160823
  16. HUMULIN N [Suspect]
     Active Substance: INSULIN HUMAN
     Dosage: 54 U, DAILY AT BEDTIME
     Route: 058
  17. COUMADIN [Suspect]
     Active Substance: WARFARIN SODIUM
     Indication: ATRIAL FIBRILLATION
     Dosage: UNK, UNKNOWN
     Route: 065
  18. DIGOXIN. [Concomitant]
     Active Substance: DIGOXIN
     Indication: PRODUCT USED FOR UNKNOWN INDICATION
  19. HUMULIN R [Suspect]
     Active Substance: INSULIN HUMAN
     Dosage: UNK, UNKNOWN
     Route: 065
  20. HUMULIN R U-500 [Suspect]
     Active Substance: INSULIN HUMAN
     Dosage: 30 U, EACH MORNING
     Route: 058
  21. HUMULIN N [Suspect]
     Active Substance: INSULIN HUMAN
     Indication: TYPE 2 DIABETES MELLITUS
     Dosage: UNK UNK, UNKNOWN
     Route: 065
     Dates: start: 1995
  22. HUMULIN R [Suspect]
     Active Substance: INSULIN HUMAN
     Dosage: 18 U, DAILY
     Route: 058
  23. HUMULIN R U-500 [Suspect]
     Active Substance: INSULIN HUMAN
     Dosage: 95 U, EACH EVENING
     Route: 065
  24. HUMULIN R [Suspect]
     Active Substance: INSULIN HUMAN
     Indication: TYPE 2 DIABETES MELLITUS
     Dosage: 24 U, EACH MORNING
     Route: 065
     Dates: start: 1996, end: 201605
  25. HUMULIN R [Suspect]
     Active Substance: INSULIN HUMAN
     Dosage: 30 U, EACH MORNING
     Route: 058
  26. HUMULIN N [Suspect]
     Active Substance: INSULIN HUMAN
     Dosage: 80 U, EACH MORNING
     Route: 058
  27. HUMULIN N [Suspect]
     Active Substance: INSULIN HUMAN
     Dosage: 36 U, DAILY
     Route: 058
  28. HUMULIN N [Suspect]
     Active Substance: INSULIN HUMAN
     Dosage: 18 U, DAILY
     Route: 058
  29. HUMULIN N [Suspect]
     Active Substance: INSULIN HUMAN
     Dosage: 35 U, DAILY AFTERNOON
     Route: 058

REACTIONS (46)
  - Polyp [Recovered/Resolved]
  - Neuropathy peripheral [Not Recovered/Not Resolved]
  - Weight decreased [Not Recovered/Not Resolved]
  - Feeling abnormal [Unknown]
  - Blood glucose decreased [Not Recovered/Not Resolved]
  - Blood glucose increased [Not Recovered/Not Resolved]
  - Hepatic cirrhosis [Not Recovered/Not Resolved]
  - Paraesthesia oral [Recovered/Resolved]
  - Headache [Recovered/Resolved]
  - Angina pectoris [Unknown]
  - Chest pain [Unknown]
  - Cardiac cirrhosis [Unknown]
  - Asthma [Not Recovered/Not Resolved]
  - Fall [Recovered/Resolved]
  - Varices oesophageal [Not Recovered/Not Resolved]
  - Blood glucose increased [Not Recovered/Not Resolved]
  - Fall [Recovered/Resolved]
  - Drug ineffective [Not Recovered/Not Resolved]
  - Haemorrhage [Not Recovered/Not Resolved]
  - Rectal haemorrhage [Recovered/Resolved]
  - Upper limb fracture [Recovered/Resolved]
  - Pain [Recovered/Resolved]
  - Atrial fibrillation [Not Recovered/Not Resolved]
  - Anaemia [Not Recovered/Not Resolved]
  - Wrong technique in product usage process [Unknown]
  - Abdominal pain upper [Unknown]
  - Haemorrhoids [Recovered/Resolved]
  - Blood glucose increased [Not Recovered/Not Resolved]
  - Blood glucose increased [Unknown]
  - Malaise [Recovered/Resolved]
  - Device dislocation [Unknown]
  - Contusion [Unknown]
  - Skin discolouration [Unknown]
  - Asthma [Unknown]
  - Blood glucose increased [Unknown]
  - Limb injury [Recovered/Resolved]
  - Procedural haemorrhage [Unknown]
  - Road traffic accident [Recovered/Resolved]
  - Head injury [Recovered/Resolved]
  - Product dose omission [Unknown]
  - Visual impairment [Recovering/Resolving]
  - Cardiac murmur [Unknown]
  - Feeding disorder [Recovered/Resolved]
  - Blood glucose decreased [Recovered/Resolved]
  - Abdominal distension [Unknown]
  - Accidental underdose [Recovered/Resolved]

NARRATIVE: CASE EVENT DATE: 2014
